FAERS Safety Report 23237835 (Version 2)
Quarter: 2024Q1

REPORT INFORMATION
  Report Type: Spontaneous
  Country: DE (occurrence: DE)
  Receive Date: 20231128
  Receipt Date: 20240208
  Transmission Date: 20240410
  Serious: Yes (Other)
  Sender: FDA-Public Use
  Company Number: DE-CELLTRION INC.-2023DE022564

PATIENT

DRUGS (1)
  1. RITUXIMAB [Suspect]
     Active Substance: RITUXIMAB
     Indication: Product used for unknown indication
     Dosage: UNK
     Route: 064

REACTIONS (7)
  - Premature baby [Unknown]
  - B-cell aplasia [Unknown]
  - Selective IgG subclass deficiency [Unknown]
  - Immunodeficiency common variable [Unknown]
  - Blood immunoglobulin G decreased [Unknown]
  - Vaccination failure [Unknown]
  - Foetal exposure during pregnancy [Unknown]
